FAERS Safety Report 8249722-5 (Version None)
Quarter: 2012Q1

REPORT INFORMATION
  Report Type: 
  Country: None (occurrence: None)
  Receive Date: 20120327
  Receipt Date: 20120319
  Transmission Date: 20120608
  Serious: Yes (Other)
  Sender: FDA-Public Use
  Company Number: 2012SP015287

PATIENT
  Age: 64 Year
  Sex: Female

DRUGS (3)
  1. VICTRELIS [Suspect]
     Indication: HEPATITIS C
  2. PEGASYS [Suspect]
     Indication: HEPATITIS C
     Dosage: 180 MCG; ; SC
     Route: 058
     Dates: start: 20111215
  3. RIBAVIRIN [Suspect]
     Indication: HEPATITIS C
     Dosage: 1200 MG;QD;PO
     Route: 048
     Dates: start: 20111215

REACTIONS (7)
  - VOMITING [None]
  - BLINDNESS TRANSIENT [None]
  - HYPERHIDROSIS [None]
  - MIGRAINE [None]
  - DIARRHOEA [None]
  - DEPRESSION [None]
  - NAUSEA [None]
